FAERS Safety Report 18349739 (Version 2)
Quarter: 2020Q4

REPORT INFORMATION
  Report Type: Not Available
  Country: US (occurrence: US)
  Receive Date: 20201006
  Receipt Date: 20201026
  Transmission Date: 20210114
  Serious: No
  Sender: FDA-Public Use
  Company Number: US-NEUROCRINE BIOSCIENCES INC.-2020NBI03487

PATIENT
  Age: 64 Year
  Sex: Female

DRUGS (2)
  1. INGREZZA [Suspect]
     Active Substance: VALBENAZINE
     Indication: TARDIVE DYSKINESIA
     Route: 048
     Dates: start: 20180829
  2. INGREZZA [Suspect]
     Active Substance: VALBENAZINE
     Dosage: 2 X 40MG CAPSULE
     Route: 048
     Dates: end: 2020

REACTIONS (1)
  - Therapeutic product effect decreased [Unknown]
